FAERS Safety Report 4388764-7 (Version None)
Quarter: 2004Q2

REPORT INFORMATION
  Report Type: 
  Country: None (occurrence: None)
  Receive Date: 20040624
  Receipt Date: 20040615
  Transmission Date: 20050107
  Serious: Yes (Hospitalization)
  Sender: FDA-Public Use
  Company Number: 04H-163-0263871-00

PATIENT

DRUGS (1)
  1. BUPIVACAINE AND EPINEPHRINE INJECTION (BUPIVACAINE HCL + EPINEPHRINE) [Suspect]
     Indication: POSTOPERATIVE ANALGESIA
     Dosage: WOUND INFUSION

REACTIONS (6)
  - NECROSIS [None]
  - PHARMACEUTICAL PRODUCT COMPLAINT [None]
  - POSTOPERATIVE INFECTION [None]
  - POSTOPERATIVE WOUND COMPLICATION [None]
  - SKIN DESQUAMATION [None]
  - SURGICAL PROCEDURE REPEATED [None]
